FAERS Safety Report 20706098 (Version 1)
Quarter: 2022Q2

REPORT INFORMATION
  Report Type: Spontaneous
  Country: BE (occurrence: BE)
  Receive Date: 20220413
  Receipt Date: 20220413
  Transmission Date: 20220721
  Serious: Yes (Other)
  Sender: FDA-Public Use
  Company Number: BE-ABBVIE-22K-013-4352165-00

PATIENT
  Age: 54 Year
  Sex: Male
  Weight: 75 kg

DRUGS (9)
  1. SEVOFLURANE [Suspect]
     Active Substance: SEVOFLURANE
     Indication: Sedative therapy
     Dosage: END-TIDAL CONCENTRATION OF 1% VOL AND INJECTION RATE OF 6 TO 10 ML/H
     Route: 055
     Dates: start: 2020
  2. PROPOFOL [Concomitant]
     Active Substance: PROPOFOL
     Indication: Sedation
     Route: 065
     Dates: start: 2020, end: 2020
  3. PROPOFOL [Concomitant]
     Active Substance: PROPOFOL
     Route: 042
     Dates: start: 2020, end: 2020
  4. MIDAZOLAM [Concomitant]
     Active Substance: MIDAZOLAM
     Indication: Sedation
     Dates: start: 2020, end: 2020
  5. MIDAZOLAM [Concomitant]
     Active Substance: MIDAZOLAM
     Route: 042
     Dates: start: 2020
  6. KETAMINE [Concomitant]
     Active Substance: KETAMINE
     Indication: Sedation
     Dates: start: 2020, end: 2020
  7. KETAMINE [Concomitant]
     Active Substance: KETAMINE
     Route: 042
     Dates: start: 2020
  8. SUFENTANIL [Concomitant]
     Active Substance: SUFENTANIL
     Indication: Sedation
     Dates: start: 2020, end: 2020
  9. SUFENTANIL [Concomitant]
     Active Substance: SUFENTANIL
     Dosage: 5 MCG/H
     Route: 042
     Dates: start: 2020, end: 2020

REACTIONS (2)
  - Nephrogenic diabetes insipidus [Unknown]
  - Off label use [Unknown]

NARRATIVE: CASE EVENT DATE: 20200101
